FAERS Safety Report 26213495 (Version 1)
Quarter: 2025Q4

REPORT INFORMATION
  Report Type: Spontaneous
  Country: EU (occurrence: EU)
  Receive Date: 20251230
  Receipt Date: 20251230
  Transmission Date: 20260117
  Serious: Yes (Hospitalization)
  Sender: MYLAN
  Company Number: EU-PFM-2025-05555

PATIENT
  Age: 72 Year
  Sex: Male

DRUGS (13)
  1. AMLODIPINE\VALSARTAN [Suspect]
     Active Substance: AMLODIPINE\VALSARTAN
     Indication: Hypertension
     Dosage: UNK (10 MG/160 MG TO 5 MG/80 MG
  2. HYDROCHLOROTHIAZIDE [Suspect]
     Active Substance: HYDROCHLOROTHIAZIDE
     Indication: Hypertension
     Dosage: UNK
  3. HYDROCHLOROTHIAZIDE [Suspect]
     Active Substance: HYDROCHLOROTHIAZIDE
     Indication: Diuretic therapy
  4. VALPROMIDE [Suspect]
     Active Substance: VALPROMIDE
     Indication: Product used for unknown indication
     Dosage: UNK
  5. IRON [Suspect]
     Active Substance: IRON
     Indication: Normocytic anaemia
     Dosage: UNK
  6. IRON [Suspect]
     Active Substance: IRON
     Indication: Supplementation therapy
  7. VITAMIN D [Concomitant]
     Active Substance: VITAMIN D NOS
     Indication: Normocytic anaemia
     Dosage: UNK
  8. VITAMIN D [Concomitant]
     Active Substance: VITAMIN D NOS
     Indication: Supplementation therapy
  9. CALCIUM [Concomitant]
     Active Substance: CALCIUM
     Indication: Normocytic anaemia
     Dosage: UNK
  10. CALCIUM [Concomitant]
     Active Substance: CALCIUM
     Indication: Supplementation therapy
  11. TERIPARATIDE [Concomitant]
     Active Substance: TERIPARATIDE
     Indication: Osteoporosis
     Dosage: UNK UNK, QD (DAILY)
  12. VALPROMIDE [Concomitant]
     Active Substance: VALPROMIDE
     Indication: Bipolar disorder
     Dosage: UNK
  13. PRAZEPAM [Concomitant]
     Active Substance: PRAZEPAM
     Indication: Bipolar disorder
     Dosage: UNK

REACTIONS (6)
  - Inappropriate antidiuretic hormone secretion [Unknown]
  - Adverse drug reaction [Unknown]
  - Condition aggravated [Unknown]
  - Loss of personal independence in daily activities [Unknown]
  - Product use in unapproved indication [Unknown]
  - Off label use [Unknown]
